FAERS Safety Report 16381826 (Version 3)
Quarter: 2019Q3

REPORT INFORMATION
  Report Type: Spontaneous
  Country: US (occurrence: US)
  Receive Date: 20190603
  Receipt Date: 20190802
  Transmission Date: 20191004
  Serious: Yes (Hospitalization, Other)
  Sender: FDA-Public Use
  Company Number: US-JNJFOC-20190530176

PATIENT
  Age: 66 Year
  Sex: Female

DRUGS (10)
  1. OBINUTUZUMAB. [Suspect]
     Active Substance: OBINUTUZUMAB
     Route: 011
     Dates: start: 20190426, end: 20190427
  2. LENALIDOMIDE [Suspect]
     Active Substance: LENALIDOMIDE
     Dosage: 1000 MG, UNK (CYCLE 6 ON DAYS 1-14)
     Route: 048
     Dates: start: 20190426, end: 20190509
  3. IMBRUVICA [Suspect]
     Active Substance: IBRUTINIB
     Dosage: (CYCLE 6 ON DAYS 1-14) 560 MG, QD
     Route: 048
     Dates: start: 20190426, end: 20190509
  4. VENETOCLAX. [Suspect]
     Active Substance: VENETOCLAX
     Dosage: 800 MG, QD (CYCLE 6 ON DAYS 2-14)
     Route: 048
     Dates: start: 20190426, end: 20190509
  5. VENETOCLAX. [Suspect]
     Active Substance: VENETOCLAX
     Indication: B-CELL LYMPHOMA
     Route: 048
     Dates: start: 20190112
  6. OBINUTUZUMAB. [Suspect]
     Active Substance: OBINUTUZUMAB
     Indication: B-CELL LYMPHOMA
     Dosage: 1000 MG, QD (CYCLE 6 ON DAYS 1 AND 2)
     Route: 011
     Dates: start: 20190111
  7. PREDNISONE. [Suspect]
     Active Substance: PREDNISONE
     Indication: B-CELL LYMPHOMA
     Route: 048
     Dates: start: 20190111
  8. IMBRUVICA [Suspect]
     Active Substance: IBRUTINIB
     Indication: B-CELL LYMPHOMA
     Route: 048
     Dates: start: 20190111
  9. PREDNISONE. [Suspect]
     Active Substance: PREDNISONE
     Dosage: 100 MG QD (CYCLE 6 ON DAYS 1-7)100 MG, QD
     Route: 048
     Dates: start: 20190426, end: 20190502
  10. LENALIDOMIDE [Suspect]
     Active Substance: LENALIDOMIDE
     Indication: B-CELL LYMPHOMA
     Route: 048
     Dates: start: 20190111

REACTIONS (1)
  - Bacteraemia [Recovered/Resolved]

NARRATIVE: CASE EVENT DATE: 20190509
